FAERS Safety Report 5685102-4 (Version None)
Quarter: 2008Q1

REPORT INFORMATION
  Report Type: 
  Country: None (occurrence: None)
  Receive Date: 20080328
  Receipt Date: 20080325
  Transmission Date: 20080703
  Serious: Yes (Other)
  Sender: FDA-Public Use
  Company Number: GR-BOEHRINGER INGELHEIM GMBH, GERMANY-2008-BP-04575RO

PATIENT
  Age: 30 Year
  Sex: Female

DRUGS (3)
  1. DIAZEPAM [Suspect]
     Indication: BIPOLAR I DISORDER
  2. QUETIAPINE FUMARATE [Suspect]
     Indication: BIPOLAR I DISORDER
  3. GABAPENTIN [Suspect]
     Indication: BIPOLAR I DISORDER

REACTIONS (3)
  - DRUG INEFFECTIVE [None]
  - SIMPLE PARTIAL SEIZURES [None]
  - SOMNOLENCE [None]
